FAERS Safety Report 18569970 (Version 2)
Quarter: 2021Q2

REPORT INFORMATION
  Report Type: Spontaneous
  Country: US (occurrence: US)
  Receive Date: 20201202
  Receipt Date: 20210624
  Transmission Date: 20210717
  Serious: No
  Sender: FDA-Public Use
  Company Number: US-DECIPHERA PHARMACEUTICALS LLC-2020-US-000567

PATIENT
  Age: 62 Year
  Sex: Male

DRUGS (3)
  1. ASPIRIN (E.C.) [Concomitant]
     Active Substance: ASPIRIN
     Indication: ATRIAL FIBRILLATION
     Dosage: UNK
     Route: 048
  2. QINLOCK [Suspect]
     Active Substance: RIPRETINIB
     Dosage: 150 MILLIGRAM, QD
     Route: 048
  3. QINLOCK [Suspect]
     Active Substance: RIPRETINIB
     Indication: GASTROINTESTINAL STROMAL TUMOUR
     Dosage: 150 MILLIGRAM, QD
     Route: 048
     Dates: start: 20200921

REACTIONS (10)
  - Platelet count decreased [Unknown]
  - Alopecia [Unknown]
  - Muscle spasms [Unknown]
  - Hypoaesthesia [Unknown]
  - Cognitive disorder [Unknown]
  - Flatulence [Unknown]
  - Fatigue [Unknown]
  - Head discomfort [Unknown]
  - Dizziness [Unknown]
  - Myalgia [Recovered/Resolved]

NARRATIVE: CASE EVENT DATE: 20201005
